FAERS Safety Report 8162296-2 (Version None)
Quarter: 2012Q1

REPORT INFORMATION
  Report Type: 
  Country: None (occurrence: None)
  Receive Date: 20120103
  Receipt Date: 20110930
  Transmission Date: 20120608
  Serious: No
  Sender: FDA-Public Use
  Company Number: AE-2011-001954

PATIENT
  Age: 59 Year
  Sex: Female
  Weight: 47.6277 kg

DRUGS (10)
  1. INCIVEK [Suspect]
     Dosage: 2250 MG (750 MG, 3 IN 1 D), ORAL
     Route: 048
     Dates: start: 20110923
  2. LISINOPRIL [Concomitant]
  3. RIBAPAK (RIBAVIRIN) [Concomitant]
  4. BACLOFEN [Concomitant]
  5. ACIPHEX [Concomitant]
  6. PEGASYS [Concomitant]
  7. ZYRTEC [Concomitant]
  8. LORAZEPAM [Concomitant]
  9. CARAFATE [Concomitant]
  10. HYDROCHLOROTHIAZIDE [Concomitant]

REACTIONS (3)
  - PRURITUS [None]
  - SINUSITIS [None]
  - RASH PUSTULAR [None]
